FAERS Safety Report 17270815 (Version 2)
Quarter: 2020Q2

REPORT INFORMATION
  Report Type: Report from Study
  Country: US (occurrence: US)
  Receive Date: 20200115
  Receipt Date: 20200527
  Transmission Date: 20200713
  Serious: Yes (Hospitalization)
  Sender: FDA-Public Use
  Company Number: US-ROCHE-2522271

PATIENT
  Age: 67 Year
  Sex: Female
  Weight: 63.4 kg

DRUGS (2)
  1. IBRUTINIB [Suspect]
     Active Substance: IBRUTINIB
     Indication: CHRONIC LYMPHOCYTIC LEUKAEMIA
     Dosage: DAYS 1-28, CYCLES 1-19?LAST IBRUTINIB ADMINISTERED: 30/DEC/2019?TOTAL IBRUTINIB ADMINISTERED: 5460 M
     Route: 048
     Dates: start: 20191202
  2. OBINUTUZUMAB. [Suspect]
     Active Substance: OBINUTUZUMAB
     Indication: CHRONIC LYMPHOCYTIC LEUKAEMIA
     Dosage: 100 MG IV ON DAY 1, CYCLE 1?900 MG IV ON DAY 2, CYCLE 1?1000 MG IV ON DAY 8, CYCLE 1?1000 MG IV ON D
     Route: 042
     Dates: start: 20191219, end: 20191227

REACTIONS (1)
  - Pneumonitis [Recovered/Resolved]

NARRATIVE: CASE EVENT DATE: 20191231
